FAERS Safety Report 13515476 (Version 1)
Quarter: 2017Q2

REPORT INFORMATION
  Report Type: Spontaneous
  Country: AU (occurrence: AU)
  Receive Date: 20170504
  Receipt Date: 20170504
  Transmission Date: 20170830
  Serious: Yes (Hospitalization, Other)
  Sender: FDA-Public Use
  Company Number: AU-PFIZER INC-2017190480

PATIENT
  Sex: Female

DRUGS (1)
  1. PYRALIN EN [Suspect]
     Active Substance: SULFASALAZINE
     Dosage: 4 DF, DAILY

REACTIONS (6)
  - Nausea [Unknown]
  - Diplopia [Unknown]
  - Vomiting [Unknown]
  - Product odour abnormal [Unknown]
  - Dizziness [Unknown]
  - Contraindicated product administered [Unknown]
